FAERS Safety Report 10094820 (Version 1)
Quarter: 2014Q2

REPORT INFORMATION
  Report Type: Spontaneous
  Country: US (occurrence: US)
  Receive Date: 20140422
  Receipt Date: 20140422
  Transmission Date: 20141212
  Serious: No
  Sender: FDA-Public Use
  Company Number: US-PFIZER INC-2014109152

PATIENT
  Age: 76 Year
  Sex: Female
  Weight: 63 kg

DRUGS (1)
  1. NICOTROL INHALER [Suspect]
     Indication: SMOKING CESSATION THERAPY
     Dosage: UNK, AS NEEDED
     Dates: start: 201404, end: 201404

REACTIONS (1)
  - Drug ineffective [Unknown]
